FAERS Safety Report 5518662-4 (Version None)
Quarter: 2007Q4

REPORT INFORMATION
  Report Type: 
  Country: None (occurrence: None)
  Receive Date: 20071113
  Receipt Date: 20071026
  Transmission Date: 20080405
  Serious: Yes (Hospitalization)
  Sender: FDA-Public Use
  Company Number: GXKR2007PL09271

PATIENT
  Age: 19 Year
  Sex: Female

DRUGS (4)
  1. VERAPAMIL [Suspect]
  2. ENALAPRIL MALEATE [Suspect]
  3. CETIRIZINE HCL [Suspect]
  4. RANITIDINE [Suspect]

REACTIONS (6)
  - ATRIOVENTRICULAR BLOCK FIRST DEGREE [None]
  - BRADYCARDIA [None]
  - BUNDLE BRANCH BLOCK RIGHT [None]
  - HYPOTENSION [None]
  - MYOCARDIAL ISCHAEMIA [None]
  - OVERDOSE [None]
